FAERS Safety Report 11549042 (Version 2)
Quarter: 2015Q3

REPORT INFORMATION
  Report Type: Spontaneous
  Country: US (occurrence: US)
  Receive Date: 20150903
  Receipt Date: 20150916
  Transmission Date: 20151125
  Serious: No
  Sender: FDA-Public Use
  Company Number: US-ELI_LILLY_AND_COMPANY-US201304005772

PATIENT
  Sex: Female
  Weight: 100.68 kg

DRUGS (19)
  1. LEVOTHYROXINE. [Concomitant]
     Active Substance: LEVOTHYROXINE
  2. CHLORPROMAZINE. [Concomitant]
     Active Substance: CHLORPROMAZINE
  3. COREG [Concomitant]
     Active Substance: CARVEDILOL
  4. PREDNISONE. [Concomitant]
     Active Substance: PREDNISONE
  5. BACTRIM [Concomitant]
     Active Substance: SULFAMETHOXAZOLE\TRIMETHOPRIM
  6. LIPITOR [Concomitant]
     Active Substance: ATORVASTATIN CALCIUM
  7. TOPAMAX [Concomitant]
     Active Substance: TOPIRAMATE
  8. PLAQUENIL [Concomitant]
     Active Substance: HYDROXYCHLOROQUINE SULFATE
  9. ACTINOL [Concomitant]
  10. HUMALOG MIX50/50 [Suspect]
     Active Substance: INSULIN LISPRO
     Dosage: UNK, UNKNOWN
  11. VESICARE [Concomitant]
     Active Substance: SOLIFENACIN SUCCINATE
  12. FLORINEF ACETATE [Concomitant]
     Active Substance: FLUDROCORTISONE ACETATE
  13. ORENCIA [Concomitant]
     Active Substance: ABATACEPT
  14. ONGLYZA [Concomitant]
     Active Substance: SAXAGLIPTIN HYDROCHLORIDE
  15. PLAVIX [Concomitant]
     Active Substance: CLOPIDOGREL BISULFATE
  16. LORTAB [Concomitant]
     Active Substance: ACETAMINOPHEN\HYDROCODONE BITARTRATE
  17. ISOSORBIDE. [Concomitant]
     Active Substance: ISOSORBIDE
  18. RANEXA [Concomitant]
     Active Substance: RANOLAZINE
  19. NITROSTAT [Concomitant]
     Active Substance: NITROGLYCERIN

REACTIONS (2)
  - Upper limb fracture [Recovered/Resolved]
  - Fall [Recovered/Resolved]
